FAERS Safety Report 17767844 (Version 2)
Quarter: 2020Q2

REPORT INFORMATION
  Report Type: Report from Study
  Country: AU (occurrence: AU)
  Receive Date: 20200511
  Receipt Date: 20200616
  Transmission Date: 20200714
  Serious: Yes (Other)
  Sender: FDA-Public Use
  Company Number: AU-SHIRE-AU201912549

PATIENT

DRUGS (19)
  1. ELAPRASE [Suspect]
     Active Substance: IDURSULFASE
     Dosage: UNK
  2. ELAPRASE [Suspect]
     Active Substance: IDURSULFASE
     Dosage: UNK
     Route: 065
     Dates: start: 20190501
  3. ELAPRASE [Suspect]
     Active Substance: IDURSULFASE
     Dosage: 18 MILLIGRAM, 1X/WEEK
     Route: 050
     Dates: start: 201401
  4. ELAPRASE [Suspect]
     Active Substance: IDURSULFASE
     Dosage: 0.57 MILLIGRAM/KILOGRAM
     Route: 041
     Dates: start: 20140108
  5. ELAPRASE [Suspect]
     Active Substance: IDURSULFASE
     Dosage: 0.57 MILLIGRAM/KILOGRAM, 1X/WEEK
     Route: 041
     Dates: start: 20180919
  6. ELAPRASE [Suspect]
     Active Substance: IDURSULFASE
     Dosage: 18 MILLIGRAM, 1X/WEEK
     Route: 041
     Dates: start: 20190403
  7. ELAPRASE [Suspect]
     Active Substance: IDURSULFASE
     Dosage: 18 MILLIGRAM, 1X/WEEK
     Route: 041
     Dates: start: 20190912
  8. ELAPRASE [Suspect]
     Active Substance: IDURSULFASE
     Dosage: 0.57 MG/KG, 1X/WEEK
     Route: 041
     Dates: start: 201401
  9. ELAPRASE [Suspect]
     Active Substance: IDURSULFASE
     Dosage: 18 MILLIGRAM, 1X/WEEK
     Route: 041
  10. ELAPRASE [Suspect]
     Active Substance: IDURSULFASE
     Dosage: 0.56 MILLIGRAM/KILOGRAM, 1X/WEEK
     Route: 041
     Dates: start: 201401, end: 20190912
  11. ELAPRASE [Suspect]
     Active Substance: IDURSULFASE
     Indication: MUCOPOLYSACCHARIDOSIS II
     Dosage: 0.57 MG/KG, 0.56 MG/KG, 1X/WEEK
     Route: 041
     Dates: start: 201401, end: 20190912
  12. ELAPRASE [Suspect]
     Active Substance: IDURSULFASE
     Dosage: 0.57 MG/KG, 1X/WEEK
     Route: 041
     Dates: start: 20190912
  13. ELAPRASE [Suspect]
     Active Substance: IDURSULFASE
     Dosage: 18 MILLIGRAM, 1X/WEEK
     Route: 041
     Dates: start: 20190501
  14. ELAPRASE [Suspect]
     Active Substance: IDURSULFASE
     Dosage: 18 MILLIGRAM, 1X/WEEK
     Route: 041
     Dates: start: 20190814
  15. ELAPRASE [Suspect]
     Active Substance: IDURSULFASE
     Dosage: 18 MILLIGRAM, 1X/WEEK
     Route: 041
     Dates: start: 20200401
  16. ELAPRASE [Suspect]
     Active Substance: IDURSULFASE
     Dosage: 0.57 MILLIGRAM/KILOGRAM
     Route: 041
     Dates: start: 20171228
  17. ELAPRASE [Suspect]
     Active Substance: IDURSULFASE
     Dosage: 0.57 MILLIGRAM/KILOGRAM, 1X/WEEK
     Route: 041
     Dates: start: 201401, end: 20190912
  18. ELAPRASE [Suspect]
     Active Substance: IDURSULFASE
     Dosage: 18 MILLIGRAM, 1X/WEEK
     Route: 050
  19. ELAPRASE [Suspect]
     Active Substance: IDURSULFASE
     Dosage: 0.57 MILLIGRAM/KILOGRAM
     Route: 041
     Dates: start: 20190116

REACTIONS (6)
  - Bradycardia [Recovered/Resolved]
  - Incorrect route of product administration [Unknown]
  - Lower respiratory tract infection [Recovering/Resolving]
  - Dysstasia [Recovered/Resolved]
  - Nasopharyngitis [Not Recovered/Not Resolved]
  - Cough [Unknown]

NARRATIVE: CASE EVENT DATE: 20190410
